FAERS Safety Report 8588641-1 (Version None)
Quarter: 2012Q3

REPORT INFORMATION
  Report Type: 
  Country: None (occurrence: None)
  Receive Date: 20120813
  Receipt Date: 20120809
  Transmission Date: 20120928
  Serious: Yes (Life-Threatening, Hospitalization, Disabling, Other)
  Sender: FDA-Public Use
  Company Number: PHHY2012CA066253

PATIENT
  Sex: Female

DRUGS (8)
  1. ZOLEDRONOC ACID [Suspect]
     Indication: OSTEOPOROSIS
     Dosage: UNK
     Route: 042
     Dates: start: 20090804
  2. ZOLEDRONOC ACID [Suspect]
     Dosage: UNK
     Route: 042
     Dates: start: 20110912
  3. ZOLEDRONOC ACID [Suspect]
     Route: 042
     Dates: start: 20100817
  4. SYNTHROID [Concomitant]
     Dosage: 0.1 MG, UNK
  5. PLAVIX [Concomitant]
     Dosage: 75 MG, UNK
  6. CHOLESTYRAMINE [Concomitant]
  7. FLUTICASONE PROPIONATE [Concomitant]
  8. ATROVENT [Concomitant]

REACTIONS (9)
  - FALL [None]
  - THORACIC VERTEBRAL FRACTURE [None]
  - PELVIC HAEMATOMA [None]
  - PUBIS FRACTURE [None]
  - PELVIC FRACTURE [None]
  - ACETABULUM FRACTURE [None]
  - HIP FRACTURE [None]
  - ANAEMIA [None]
  - DRUG INEFFECTIVE [None]
